FAERS Safety Report 9513398 (Version 1)
Quarter: 2013Q3

REPORT INFORMATION
  Report Type: Spontaneous
  Country: US (occurrence: US)
  Receive Date: 20130910
  Receipt Date: 20130910
  Transmission Date: 20140515
  Serious: No
  Sender: FDA-Public Use
  Company Number: US-TARO-2012P1051105

PATIENT
  Age: 55 Year
  Sex: Female
  Weight: 58.97 kg

DRUGS (4)
  1. WARFARIN SODIUM TABLETS USP 10MG [Suspect]
     Indication: AORTIC VALVE REPLACEMENT
     Route: 048
     Dates: start: 200201
  2. WARFARIN SODIUM TABLETS USP 10MG [Suspect]
     Indication: AORTIC VALVE REPLACEMENT
     Route: 048
     Dates: start: 200201
  3. WARFARIN SODIUM TABLETS USP 10MG [Suspect]
     Indication: AORTIC VALVE REPLACEMENT
     Route: 048
  4. DIAZEPAM [Concomitant]
     Dates: start: 2006

REACTIONS (7)
  - Abdominal pain [Recovering/Resolving]
  - Nausea [Recovering/Resolving]
  - Fatigue [Recovering/Resolving]
  - Swelling [Recovering/Resolving]
  - Malaise [Recovering/Resolving]
  - Hepatic pain [Recovering/Resolving]
  - Alpha-1 anti-trypsin deficiency [Not Recovered/Not Resolved]
